FAERS Safety Report 12704651 (Version 4)
Quarter: 2016Q4

REPORT INFORMATION
  Report Type: Report from Study
  Country: BR (occurrence: BR)
  Receive Date: 20160831
  Receipt Date: 20161007
  Transmission Date: 20170207
  Serious: Yes (Other)
  Sender: FDA-Public Use
  Company Number: PHHY2016BR044666

PATIENT
  Age: 50 Year
  Sex: Female
  Weight: 68 kg

DRUGS (6)
  1. AFINITOR [Suspect]
     Active Substance: EVEROLIMUS
     Dosage: 10 MG, QD
     Route: 048
     Dates: start: 20160201, end: 20160814
  2. AROMASIN [Concomitant]
     Active Substance: EXEMESTANE
     Indication: PRODUCT USED FOR UNKNOWN INDICATION
     Route: 065
  3. JARDIANCE [Concomitant]
     Active Substance: EMPAGLIFLOZIN
     Indication: DIABETES MELLITUS
     Dosage: UNK
     Route: 065
  4. AFINITOR [Suspect]
     Active Substance: EVEROLIMUS
     Indication: BREAST CANCER METASTATIC
     Dosage: 10 MG, QHS  (AT NIGHT)
     Route: 048
     Dates: start: 201601
  5. XELODA [Concomitant]
     Active Substance: CAPECITABINE
     Indication: BONE CANCER
  6. XELODA [Concomitant]
     Active Substance: CAPECITABINE
     Indication: BREAST CANCER
     Dosage: 3 DF, QD
     Route: 048
     Dates: start: 20160905

REACTIONS (17)
  - Blood glucose increased [Recovering/Resolving]
  - Nail discolouration [Recovering/Resolving]
  - Drug ineffective [Unknown]
  - Dysstasia [Recovering/Resolving]
  - Drug intolerance [Unknown]
  - Ageusia [Not Recovered/Not Resolved]
  - Eye swelling [Unknown]
  - Nausea [Unknown]
  - Pain in extremity [Unknown]
  - Malaise [Unknown]
  - Bone pain [Recovering/Resolving]
  - Malignant neoplasm progression [Unknown]
  - Pelvic pain [Unknown]
  - Dry eye [Unknown]
  - Weight decreased [Not Recovered/Not Resolved]
  - Abasia [Unknown]
  - Decreased appetite [Unknown]

NARRATIVE: CASE EVENT DATE: 201601
